FAERS Safety Report 6828241-4 (Version None)
Quarter: 2010Q3

REPORT INFORMATION
  Report Type: 
  Country: None (occurrence: None)
  Receive Date: 20100709
  Receipt Date: 20070202
  Transmission Date: 20110219
  Serious: Yes (Other)
  Sender: FDA-Public Use
  Company Number: US-PFIZER INC-2007009524

PATIENT
  Sex: Female
  Weight: 56.7 kg

DRUGS (1)
  1. CHANTIX [Suspect]
     Indication: SMOKING CESSATION THERAPY
     Dates: start: 20070101, end: 20070202

REACTIONS (6)
  - ANXIETY [None]
  - HEADACHE [None]
  - HOSTILITY [None]
  - MALAISE [None]
  - MENTAL DISORDER [None]
  - NAUSEA [None]
